FAERS Safety Report 7570418-7 (Version None)
Quarter: 2011Q2

REPORT INFORMATION
  Report Type: 
  Country: None (occurrence: None)
  Receive Date: 20110622
  Receipt Date: 20110622
  Transmission Date: 20111010
  Serious: Yes (Other)
  Sender: FDA-Public Use
  Company Number: None

PATIENT
  Sex: Male
  Weight: 99.5 kg

DRUGS (10)
  1. ACETAMINOPHEN [Concomitant]
  2. NILUTAMIDE 150MG SANOFI-AVENTIS [Suspect]
     Indication: PROSTATE CANCER
     Dosage: 150MG QD PO
     Route: 048
     Dates: start: 20101101
  3. FOLIC ACID [Concomitant]
  4. ATENOLOL [Concomitant]
  5. METFORMIN HCL [Concomitant]
  6. FERROUS SULFATE TAB [Concomitant]
  7. AMLODIPINE BESYLATE AND BENAZEPRIL HCL [Concomitant]
  8. ATORVASTATIN [Concomitant]
  9. NIACIN [Concomitant]
  10. ASPIRIN [Concomitant]

REACTIONS (1)
  - NON-HODGKIN'S LYMPHOMA [None]
